FAERS Safety Report 6386173-2 (Version None)
Quarter: 2009Q4

REPORT INFORMATION
  Report Type: 
  Country: None (occurrence: None)
  Receive Date: 20091002
  Receipt Date: 20081124
  Transmission Date: 20100525
  Serious: No
  Sender: FDA-Public Use
  Company Number: US-ASTRAZENECA-2008UW26246

PATIENT
  Age: 58 Year
  Sex: Female
  Weight: 58.1 kg

DRUGS (1)
  1. ARIMIDEX [Suspect]
     Indication: BREAST CANCER STAGE II
     Dosage: UNKNOWN
     Route: 048
     Dates: start: 20070601, end: 20080601

REACTIONS (3)
  - ALOPECIA [None]
  - MYALGIA [None]
  - PAIN OF SKIN [None]
